FAERS Safety Report 6325853-1 (Version None)
Quarter: 2009Q3

REPORT INFORMATION
  Report Type: 
  Country: None (occurrence: None)
  Receive Date: 20090824
  Receipt Date: 20090814
  Transmission Date: 20100115
  Serious: Yes (Hospitalization)
  Sender: FDA-Public Use
  Company Number: US-ABBOTT-09P-163-0591150-00

PATIENT
  Age: 80 Year
  Sex: Male

DRUGS (3)
  1. TRICOR [Suspect]
     Indication: HYPERLIPIDAEMIA
  2. ZETIA [Concomitant]
     Indication: DRUG USE FOR UNKNOWN INDICATION
  3. WELCHOL [Concomitant]
     Indication: DRUG USE FOR UNKNOWN INDICATION

REACTIONS (4)
  - BLOOD CREATININE INCREASED [None]
  - BLOOD PRESSURE INCREASED [None]
  - PULMONARY OEDEMA [None]
  - RENAL FAILURE ACUTE [None]
